FAERS Safety Report 8290394-1 (Version None)
Quarter: 2012Q2

REPORT INFORMATION
  Report Type: 
  Country: None (occurrence: None)
  Receive Date: 20120412
  Receipt Date: 20120412
  Transmission Date: 20120825
  Serious: Yes (Death)
  Sender: FDA-Public Use
  Company Number: None

PATIENT
  Age: 14 Year
  Sex: Female
  Weight: 38.6 kg

DRUGS (1)
  1. THROMBIN NOS [Suspect]
     Indication: SPINAL FUSION SURGERY
     Dosage: APPROX 10 VIALS
     Dates: start: 20120130

REACTIONS (3)
  - RESPIRATORY FAILURE [None]
  - PULMONARY EMBOLISM [None]
  - POST PROCEDURAL COMPLICATION [None]
